FAERS Safety Report 17958661 (Version 1)
Quarter: 2020Q2

REPORT INFORMATION
  Report Type: Spontaneous
  Country: FR (occurrence: FR)
  Receive Date: 20200629
  Receipt Date: 20200629
  Transmission Date: 20200714
  Serious: Yes (Other)
  Sender: FDA-Public Use
  Company Number: FR-PFIZER INC-2020247417

PATIENT
  Age: 17 Year
  Sex: Male

DRUGS (4)
  1. CANNABIS [Suspect]
     Active Substance: CANNABIS SATIVA SUBSP. INDICA TOP
     Dosage: 10 JOINTS DAILY
     Route: 055
     Dates: start: 2017, end: 20191101
  2. XANAX [Suspect]
     Active Substance: ALPRAZOLAM
     Dosage: UNK (NOT SPECIFIED)
     Route: 065
  3. COCAINE [Suspect]
     Active Substance: COCAINE
     Dosage: UNK (NOT SPECIFIED)
     Route: 055
  4. CODEINE [Suspect]
     Active Substance: CODEINE
     Dosage: UNK (UNSPECIFIED)
     Route: 065

REACTIONS (4)
  - Drug withdrawal syndrome [Recovering/Resolving]
  - Product use issue [Unknown]
  - Drug abuse [Recovering/Resolving]
  - Off label use [Unknown]

NARRATIVE: CASE EVENT DATE: 20191106
